FAERS Safety Report 25856514 (Version 1)
Quarter: 2025Q3

REPORT INFORMATION
  Report Type: Spontaneous
  Country: US (occurrence: US)
  Receive Date: 20250929
  Receipt Date: 20250929
  Transmission Date: 20251020
  Serious: Yes (Hospitalization, Other)
  Sender: ABBVIE
  Company Number: US-ABBVIE-6474621

PATIENT
  Sex: Female

DRUGS (1)
  1. SKYRIZI [Suspect]
     Active Substance: RISANKIZUMAB-RZAA
     Indication: Crohn^s disease
     Route: 058
     Dates: end: 2025

REACTIONS (4)
  - Nephrolithiasis [Unknown]
  - Sepsis [Unknown]
  - Adrenocortical insufficiency acute [Unknown]
  - Device issue [Unknown]

NARRATIVE: CASE EVENT DATE: 20250101
